FAERS Safety Report 6928952-6 (Version None)
Quarter: 2010Q3

REPORT INFORMATION
  Report Type: 
  Country: None (occurrence: None)
  Receive Date: 20100817
  Receipt Date: 20100713
  Transmission Date: 20110219
  Serious: No
  Sender: FDA-Public Use
  Company Number: US-PFIZER INC-2010088425

PATIENT
  Sex: Female
  Weight: 63.492 kg

DRUGS (1)
  1. CORTEF [Suspect]
     Indication: ADRENAL INSUFFICIENCY
     Dosage: 25 TO 30 MG DAILY
     Dates: start: 20100701

REACTIONS (1)
  - FATIGUE [None]
